FAERS Safety Report 6850548-5 (Version None)
Quarter: 2010Q3

REPORT INFORMATION
  Report Type: 
  Country: None (occurrence: None)
  Receive Date: 20100716
  Receipt Date: 20080117
  Transmission Date: 20110219
  Serious: Yes (Other)
  Sender: FDA-Public Use
  Company Number: US-PFIZER INC-2007088418

PATIENT
  Sex: Male
  Weight: 82.6 kg

DRUGS (2)
  1. CHANTIX [Suspect]
     Indication: SMOKING CESSATION THERAPY
     Route: 048
     Dates: start: 20070829, end: 20070901
  2. VITAMINS [Concomitant]
     Route: 048

REACTIONS (8)
  - ABNORMAL DREAMS [None]
  - ANGER [None]
  - CHEST PAIN [None]
  - DYSPNOEA [None]
  - HALLUCINATION [None]
  - INSOMNIA [None]
  - PALPITATIONS [None]
  - VISUAL IMPAIRMENT [None]
